FAERS Safety Report 15691801 (Version 1)
Quarter: 2018Q4

REPORT INFORMATION
  Report Type: Spontaneous
  Country: VN (occurrence: VN)
  Receive Date: 20181205
  Receipt Date: 20181205
  Transmission Date: 20190205
  Serious: Yes (Hospitalization)
  Sender: FDA-Public Use
  Company Number: VN-NOVOPROD-635268

PATIENT
  Age: 50 Year
  Sex: Female
  Weight: 39 kg

DRUGS (2)
  1. GLUCOPHAGE XR [Concomitant]
     Active Substance: METFORMIN HYDROCHLORIDE
     Indication: TYPE 2 DIABETES MELLITUS
     Dosage: 750 MG, SINGLE
     Route: 048
  2. MIXTARD HUMAN 70/30 [Suspect]
     Active Substance: INSULIN HUMAN
     Indication: TYPE 2 DIABETES MELLITUS
     Dosage: 30 IU
     Route: 058
     Dates: start: 20181113, end: 20181120

REACTIONS (3)
  - Injection site erythema [Recovered/Resolved]
  - Injection site abscess [Recovered/Resolved]
  - Injection site swelling [Recovered/Resolved]

NARRATIVE: CASE EVENT DATE: 20181113
